FAERS Safety Report 26183292 (Version 1)
Quarter: 2025Q4

REPORT INFORMATION
  Report Type: Spontaneous
  Country: CN (occurrence: CN)
  Receive Date: 20251221
  Receipt Date: 20251221
  Transmission Date: 20260117
  Serious: Yes (Death, Hospitalization, Other)
  Sender: AMGEN
  Company Number: CN-AMGEN-CHNSP2025248399

PATIENT

DRUGS (2)
  1. PROLIA [Suspect]
     Active Substance: DENOSUMAB
     Indication: Osteoporosis
     Dosage: UNK
     Route: 065
  2. ROMOSOZUMAB [Suspect]
     Active Substance: ROMOSOZUMAB
     Indication: Osteoporosis
     Dosage: UNK
     Route: 065

REACTIONS (21)
  - Death [Fatal]
  - Severe cutaneous adverse reaction [Unknown]
  - Adverse event [Unknown]
  - Acute generalised exanthematous pustulosis [Unknown]
  - Bullous haemorrhagic dermatosis [Unknown]
  - Cutaneous vasculitis [Unknown]
  - Dermatitis bullous [Unknown]
  - Dermatitis exfoliative [Unknown]
  - Dermatitis exfoliative generalised [Unknown]
  - Drug reaction with eosinophilia and systemic symptoms [Unknown]
  - Epidermal necrosis [Unknown]
  - Erythema multiforme [Unknown]
  - Erythrodermic atopic dermatitis [Unknown]
  - Exfoliative rash [Unknown]
  - Oculomucocutaneous syndrome [Unknown]
  - SJS-TEN overlap [Unknown]
  - Skin necrosis [Unknown]
  - Stevens-Johnson syndrome [Unknown]
  - Target skin lesion [Unknown]
  - Toxic epidermal necrolysis [Unknown]
  - Toxic skin eruption [Unknown]
